FAERS Safety Report 5903763-9 (Version None)
Quarter: 2008Q3

REPORT INFORMATION
  Report Type: 
  Country: None (occurrence: None)
  Receive Date: 20080930
  Receipt Date: 20080917
  Transmission Date: 20090109
  Serious: Yes (Hospitalization)
  Sender: FDA-Public Use
  Company Number: US-ELI_LILLY_AND_COMPANY-US200809003919

PATIENT
  Sex: Female

DRUGS (11)
  1. BYETTA [Suspect]
     Indication: TYPE 2 DIABETES MELLITUS
     Dosage: 10 UG, 2/D
     Route: 058
     Dates: end: 20080901
  2. METFORMIN HCL [Concomitant]
     Indication: TYPE 2 DIABETES MELLITUS
     Dosage: 500 MG, 3/D
  3. ACTOS [Concomitant]
     Indication: TYPE 2 DIABETES MELLITUS
     Dosage: 45 MG, DAILY (1/D)
  4. NOVOLOG MIX 70/30 [Concomitant]
     Indication: TYPE 2 DIABETES MELLITUS
     Dosage: 60 U, EACH MORNING
  5. NOVOLOG MIX 70/30 [Concomitant]
     Dosage: 55 U, EACH EVENING
  6. ALBUTEROL [Concomitant]
  7. LISINOPRIL [Concomitant]
     Dosage: 10 MG, DAILY (1/D)
  8. ACIPHEX [Concomitant]
  9. TRICOR [Concomitant]
     Dosage: 145 MG, DAILY (1/D)
  10. CARTIA XT [Concomitant]
     Indication: BLOOD PRESSURE
     Dosage: 240 MG, DAILY (1/D)
  11. ORAL CONTRACEPTIVE NOS [Concomitant]

REACTIONS (3)
  - BLOOD TRIGLYCERIDES INCREASED [None]
  - DIABETIC KETOACIDOSIS [None]
  - PANCREATITIS [None]
